FAERS Safety Report 14855239 (Version 3)
Quarter: 2020Q2

REPORT INFORMATION
  Report Type: Spontaneous
  Country: US (occurrence: US)
  Receive Date: 20180507
  Receipt Date: 20200505
  Transmission Date: 20200713
  Serious: No
  Sender: FDA-Public Use
  Company Number: US-ROCHE-1949488

PATIENT
  Sex: Male

DRUGS (10)
  1. ESBRIET [Suspect]
     Active Substance: PIRFENIDONE
     Indication: IDIOPATHIC PULMONARY FIBROSIS
     Dosage: WITH FOOD
     Route: 048
     Dates: start: 20170407
  2. ESBRIET [Suspect]
     Active Substance: PIRFENIDONE
     Dosage: UNKNOWN
     Route: 048
  3. LASIX [Concomitant]
     Active Substance: FUROSEMIDE
     Route: 065
  4. PEPCID (UNITED STATES) [Concomitant]
     Route: 065
  5. ENTRESTO [Concomitant]
     Active Substance: SACUBITRIL\VALSARTAN
     Dosage: 24-26 MG
     Route: 065
  6. NITROSTAT [Concomitant]
     Active Substance: NITROGLYCERIN
  7. FUROSEMIDE. [Concomitant]
     Active Substance: FUROSEMIDE
  8. ISOSORBIDE MONONITRATE. [Concomitant]
     Active Substance: ISOSORBIDE MONONITRATE
  9. METOPROLOL SUCCINATE. [Concomitant]
     Active Substance: METOPROLOL SUCCINATE
  10. IBUPROFEN. [Concomitant]
     Active Substance: IBUPROFEN

REACTIONS (6)
  - Abdominal discomfort [Not Recovered/Not Resolved]
  - Gastrointestinal disorder [Recovered/Resolved]
  - Abdominal pain [Unknown]
  - Abdominal pain upper [Unknown]
  - Cough [Unknown]
  - Abdominal discomfort [Unknown]
